FAERS Safety Report 20518886 (Version 1)
Quarter: 2022Q1

REPORT INFORMATION
  Report Type: Spontaneous
  Country: US (occurrence: US)
  Receive Date: 20220225
  Receipt Date: 20220225
  Transmission Date: 20220423
  Serious: Yes (Other)
  Sender: FDA-Public Use
  Company Number: US-PFIZER INC-202200291243

PATIENT
  Age: 82 Year
  Sex: Female

DRUGS (3)
  1. DOFETILIDE [Suspect]
     Active Substance: DOFETILIDE
     Dosage: 250 MG, 3X/DAY
     Route: 048
  2. TIKOSYN [Suspect]
     Active Substance: DOFETILIDE
     Dosage: UNK
  3. NITROGLYCERIN [Suspect]
     Active Substance: NITROGLYCERIN
     Dosage: 0.4 MG, AS NEEDED (Q5MIN PRN CP X 3)
     Route: 060

REACTIONS (4)
  - Atrial fibrillation [Unknown]
  - Knee arthroplasty [Recovering/Resolving]
  - Feeling abnormal [Unknown]
  - Asthma exercise induced [Recovering/Resolving]
